FAERS Safety Report 25336318 (Version 5)
Quarter: 2025Q2

REPORT INFORMATION
  Report Type: Spontaneous
  Country: PR (occurrence: PR)
  Receive Date: 20250520
  Receipt Date: 20250626
  Transmission Date: 20250716
  Serious: No
  Sender: PFIZER
  Company Number: PR-PFIZER INC-PV202500058302

PATIENT
  Age: 12 Year
  Sex: Male

DRUGS (1)
  1. GENOTROPIN [Suspect]
     Active Substance: SOMATROPIN
     Dosage: 1 MG, DAILY

REACTIONS (3)
  - Drug dose omission by device [Unknown]
  - Wrong technique in device usage process [Unknown]
  - Device leakage [Unknown]
